FAERS Safety Report 24595174 (Version 1)
Quarter: 2024Q4

REPORT INFORMATION
  Report Type: Spontaneous
  Country: US (occurrence: US)
  Receive Date: 20241108
  Receipt Date: 20241108
  Transmission Date: 20250115
  Serious: Yes (Hospitalization, Other)
  Sender: BRACCO
  Company Number: US-BRACCO-2024US06908

PATIENT
  Sex: Female

DRUGS (3)
  1. ISOVUE [Suspect]
     Active Substance: IOPAMIDOL
     Indication: Computerised tomogram
     Dosage: 80 ML, SINGLE
     Route: 042
     Dates: start: 20240812, end: 20240812
  2. ATENOLOL [Concomitant]
     Active Substance: ATENOLOL
     Indication: Tachycardia
     Dosage: 25 MG
  3. MECLIZINE [Concomitant]
     Active Substance: MECLIZINE HYDROCHLORIDE
     Indication: Inner ear disorder

REACTIONS (20)
  - Loss of consciousness [Recovered/Resolved]
  - Blood sodium decreased [Unknown]
  - Polycythaemia vera [Unknown]
  - Anaphylactic reaction [Unknown]
  - Hallucination, visual [Unknown]
  - Blood pressure increased [Unknown]
  - Ventricular extrasystoles [Unknown]
  - Disorientation [Unknown]
  - Dry mouth [Unknown]
  - Incoherent [Unknown]
  - Vomiting [Recovered/Resolved]
  - Tooth loss [Unknown]
  - Confusional state [Unknown]
  - Asthenia [Unknown]
  - Gait disturbance [Unknown]
  - Chest discomfort [Unknown]
  - Altered visual depth perception [Unknown]
  - Illness [Unknown]
  - Dizziness [Unknown]
  - Amnesia [Unknown]

NARRATIVE: CASE EVENT DATE: 20240801
